FAERS Safety Report 15298597 (Version 1)
Quarter: 2018Q3

REPORT INFORMATION
  Report Type: Spontaneous
  Country: FR (occurrence: FR)
  Receive Date: 20180820
  Receipt Date: 20180820
  Transmission Date: 20181010
  Serious: Yes (Other)
  Sender: FDA-Public Use
  Company Number: FR-PURDUE PHARMA-GBR-2017-0046612

PATIENT
  Age: 93 Year
  Sex: Female

DRUGS (15)
  1. FLAGYL [Concomitant]
     Active Substance: METRONIDAZOLE\METRONIDAZOLE HYDROCHLORIDE
     Indication: CLOSTRIDIUM DIFFICILE COLITIS
     Dosage: 1 DF, TID
     Route: 048
     Dates: start: 20170522, end: 20170601
  2. FUNGIZONE [Concomitant]
     Active Substance: AMPHOTERICIN B
     Dosage: 100MG/ML, 3 TEASPOON PER DAY
     Route: 048
     Dates: start: 20170522
  3. OXYNORMORO [Suspect]
     Active Substance: OXYCODONE HYDROCHLORIDE
     Indication: PAIN
     Dosage: 1 DF, DAILY [10 MG STRENGTH] [10MG IF PAINFUL AND BEFORE CARE]
     Route: 048
     Dates: start: 20170530
  4. SERESTA [Suspect]
     Active Substance: OXAZEPAM
     Indication: ANXIETY
     Dosage: 2 TABLET, DAILY
     Route: 048
     Dates: start: 20170601
  5. SERESTA [Suspect]
     Active Substance: OXAZEPAM
     Dosage: 4 TABLET, PRN
     Route: 048
     Dates: start: 20170530, end: 20170530
  6. IMOVANE [Concomitant]
     Active Substance: ZOPICLONE
     Dosage: 3.75 MG, PRN
     Route: 048
     Dates: start: 20170522
  7. SALBUTAMOL [Concomitant]
     Active Substance: ALBUTEROL
     Dosage: 1 DF, DAILY [5MG/2.5ML STRENGTH]
     Route: 055
     Dates: start: 20170522
  8. SERESTA [Suspect]
     Active Substance: OXAZEPAM
     Dosage: 1 TABLET, PRN
     Route: 048
     Dates: start: 20170522, end: 20170530
  9. VALIUM [Concomitant]
     Active Substance: DIAZEPAM
     Dosage: 30 DROP, DAILY [10MG/ML STRENGTH]
     Route: 048
     Dates: start: 20170522, end: 20170530
  10. MOVICOL [Concomitant]
     Active Substance: POLYETHYLENE GLYCOL 3350\POTASSIUM CHLORIDE\SODIUM BICARBONATE\SODIUM CHLORIDE
     Dosage: 1 DF, DAILY
     Route: 048
     Dates: start: 20170522
  11. ACUPAN [Concomitant]
     Active Substance: NEFOPAM HYDROCHLORIDE
     Dosage: 20MG/2ML, ONE VIAL PER DAY
     Route: 048
     Dates: start: 20170522, end: 20170530
  12. CALCIPARINE [Concomitant]
     Active Substance: HEPARIN CALCIUM
     Dosage: 0.4 ML, DAILY [12500UI/0.5ML STRENGTH]
     Route: 058
     Dates: start: 20170522
  13. DIFFU K [Concomitant]
     Active Substance: POTASSIUM CHLORIDE
     Dosage: 600 MG, TID
     Route: 048
     Dates: start: 20170522, end: 20170530
  14. REFRESH                            /00880201/ [Concomitant]
     Active Substance: POLYVINYL ALCOHOL\POVIDONE
     Dosage: 3 DROP, DAILY
     Route: 047
     Dates: start: 20170522
  15. DUROGESIC [Concomitant]
     Active Substance: FENTANYL
     Dosage: 12 MCG, Q1H [ONE PATCH EVERY 3 DAYS]
     Route: 062
     Dates: start: 20170522

REACTIONS (1)
  - Hypothermia [Recovering/Resolving]

NARRATIVE: CASE EVENT DATE: 20170531
